FAERS Safety Report 7005521-3 (Version None)
Quarter: 2010Q3

REPORT INFORMATION
  Report Type: 
  Country: None (occurrence: None)
  Receive Date: 20100917
  Receipt Date: 20100908
  Transmission Date: 20110219
  Serious: Yes (Other)
  Sender: FDA-Public Use
  Company Number: 2010JP005286

PATIENT
  Age: 75 Year
  Sex: Male

DRUGS (5)
  1. FUNGUARD (MICAFUNGIN) INJECTION [Suspect]
     Dosage: 50 MG, IV DRIP
     Route: 041
     Dates: start: 20100907, end: 20100908
  2. MEROPEN (MEROPENEM TRIHYDRATE) FORMULATION UNKNOWN [Suspect]
     Dates: start: 20100907
  3. AMARYL (GLIMEPIRIDE) PER ORAL NOS [Concomitant]
  4. POTACOL-R (CALCIUM CHLORIDE ANHYDROUS, MALTOSE, POTASSIUM CHLORIDE, SO [Concomitant]
  5. KN 1A (GLUCOSE, SODIUM CHLORIDE) FORMULATION UNKNOWN [Concomitant]

REACTIONS (1)
  - CHILLS [None]
